FAERS Safety Report 9498445 (Version 1)
Quarter: 2013Q3

REPORT INFORMATION
  Report Type: Report from Study
  Country: JP (occurrence: JP)
  Receive Date: 20130904
  Receipt Date: 20130904
  Transmission Date: 20140515
  Serious: Yes (Hospitalization)
  Sender: FDA-Public Use
  Company Number: JP-GLAXOSMITHKLINE-B0919182A

PATIENT
  Age: 46 Year
  Sex: Male
  Weight: 69 kg

DRUGS (5)
  1. CRAVIT [Suspect]
     Indication: INFECTION PROPHYLAXIS
     Route: 048
     Dates: start: 20130603, end: 20130608
  2. INVESTIGATIONAL DRUG [Suspect]
     Indication: ACUTE LYMPHOCYTIC LEUKAEMIA
     Dosage: 1.5MG PER DAY
     Route: 042
     Dates: start: 20130529
  3. FLUCONAZOLE [Suspect]
     Indication: INFECTION PROPHYLAXIS
     Route: 048
     Dates: start: 20130603, end: 20130608
  4. BAKTAR [Suspect]
     Indication: INFECTION PROPHYLAXIS
     Route: 048
     Dates: start: 20130529, end: 20130608
  5. ACICLOVIR [Suspect]
     Indication: INFECTION PROPHYLAXIS
     Route: 048
     Dates: start: 20130605, end: 20130806

REACTIONS (1)
  - Dermatitis allergic [Recovered/Resolved]
